FAERS Safety Report 19728923 (Version 1)
Quarter: 2021Q3

REPORT INFORMATION
  Report Type: Spontaneous
  Country: IN (occurrence: IN)
  Receive Date: 20210820
  Receipt Date: 20210820
  Transmission Date: 20211014
  Serious: Yes (Death)
  Sender: FDA-Public Use
  Company Number: IN-PFIZER INC-2018424359

PATIENT
  Age: 47 Year
  Sex: Female

DRUGS (3)
  1. ORETA [Concomitant]
     Dosage: 2.5 MG, 1X/DAY
  2. CALCIO D3 [Concomitant]
     Dosage: 60000 UNK, MONTHLY
  3. PALBACE [Suspect]
     Active Substance: PALBOCICLIB
     Indication: BREAST CANCER METASTATIC
     Dosage: 125 MG OD, CYCLIC (21 DAYS ON, STOP 1 WEEK)
     Route: 048
     Dates: start: 20180206

REACTIONS (8)
  - Death [Fatal]
  - Cough [Unknown]
  - Back pain [Unknown]
  - Abdominal pain upper [Unknown]
  - Neoplasm progression [Unknown]
  - Asthenia [Unknown]
  - Decreased appetite [Unknown]
  - General physical health deterioration [Unknown]
